FAERS Safety Report 7563634-1 (Version None)
Quarter: 2011Q2

REPORT INFORMATION
  Report Type: 
  Country: None (occurrence: None)
  Receive Date: 20110622
  Receipt Date: 20110613
  Transmission Date: 20111010
  Serious: Yes (Hospitalization)
  Sender: FDA-Public Use
  Company Number: US-BRISTOL-MYERS SQUIBB COMPANY-15203334

PATIENT
  Age: 86 Year
  Sex: Male

DRUGS (11)
  1. LEVOTHYROXINE SODIUM [Concomitant]
  2. MULTI-VITAMINS [Concomitant]
  3. TIKOSYN [Concomitant]
  4. K-DUR [Concomitant]
     Dosage: 1 DOSAGE FORM: 20 (UNITS NOT SPECIFIED)
  5. METHOTREXATE [Suspect]
  6. ASPIRIN [Concomitant]
  7. TYLENOL (CAPLET) [Concomitant]
     Dosage: 1 DF=1 TO 2 TABLETS. FOR EVERY 4 HRS.
  8. WARFARIN SODIUM [Suspect]
     Indication: THROMBOSIS PROPHYLAXIS
     Dosage: INTERRUPTED ON 19JUL2010,RESTARTED ON 23JUL10.
     Route: 048
     Dates: start: 20080926
  9. TYLENOL-500 [Concomitant]
     Dosage: 1 DF= 1 TO 2 TABLETS, EVRY 4 HRS.
     Route: 048
  10. PLACEBO [Suspect]
     Indication: THROMBOSIS PROPHYLAXIS
     Dosage: INTERRUPTED ON 19JUL2010,RESTARTED ON 23JUL10.
     Route: 048
     Dates: start: 20080926
  11. LASIX [Concomitant]

REACTIONS (1)
  - THROMBOCYTOPENIA [None]
